FAERS Safety Report 23931398 (Version 1)
Quarter: 2024Q2

REPORT INFORMATION
  Report Type: Spontaneous
  Country: US (occurrence: US)
  Receive Date: 20240603
  Receipt Date: 20240603
  Transmission Date: 20240716
  Serious: No
  Sender: FDA-Public Use
  Company Number: US-SANDOZ-SDZ2024US053844

PATIENT
  Sex: Female

DRUGS (5)
  1. ABIRATERONE [Suspect]
     Active Substance: ABIRATERONE
     Indication: Prostatic specific antigen increased
     Dosage: UNK
     Route: 065
  2. BICALUTAMIDE [Suspect]
     Active Substance: BICALUTAMIDE
     Indication: Prostatic specific antigen increased
     Dosage: UNK
     Route: 065
  3. CARBOPLATIN [Suspect]
     Active Substance: CARBOPLATIN
     Indication: Prostatic specific antigen increased
     Dosage: UNK
     Route: 065
  4. DOCETAXEL [Suspect]
     Active Substance: DOCETAXEL\DOCETAXEL ANHYDROUS
     Indication: Prostatic specific antigen increased
     Dosage: UNK
     Route: 065
  5. NEULASTA [Suspect]
     Active Substance: PEGFILGRASTIM
     Indication: Prostatic specific antigen
     Dosage: UNK
     Route: 065

REACTIONS (1)
  - Drug ineffective [Unknown]
